FAERS Safety Report 25484576 (Version 1)
Quarter: 2025Q2

REPORT INFORMATION
  Report Type: Spontaneous
  Country: US (occurrence: None)
  Receive Date: 20250626
  Receipt Date: 20250626
  Transmission Date: 20250716
  Serious: No
  Sender: FDA-CTU
  Company Number: None

PATIENT
  Sex: Female
  Weight: 81.2 kg

DRUGS (8)
  1. LENVIMA [Suspect]
     Active Substance: LENVATINIB
     Indication: Endometrial cancer
     Dosage: FREQUENCY : DAILY;?
     Route: 048
     Dates: start: 20250505
  2. KEYTRUDA [Concomitant]
     Active Substance: PEMBROLIZUMAB
  3. LINZESS [Concomitant]
     Active Substance: LINACLOTIDE
  4. LEVOTHYROXINE [Concomitant]
     Active Substance: LEVOTHYROXINE
  5. SUMATRIPTAN [Concomitant]
     Active Substance: SUMATRIPTAN
  6. ZOFRAN [Concomitant]
     Active Substance: ONDANSETRON HYDROCHLORIDE
  7. lidocaine-prilocaine external cream [Concomitant]
  8. LISINOPRIL [Concomitant]
     Active Substance: LISINOPRIL

REACTIONS (6)
  - Blood pressure fluctuation [None]
  - Oropharyngeal pain [None]
  - Diarrhoea [None]
  - Headache [None]
  - Migraine [None]
  - Dysphonia [None]
